FAERS Safety Report 23964267 (Version 1)
Quarter: 2024Q2

REPORT INFORMATION
  Report Type: Report from Study
  Country: NL (occurrence: NL)
  Receive Date: 20240611
  Receipt Date: 20240611
  Transmission Date: 20240716
  Serious: Yes (Life-Threatening)
  Sender: FDA-Public Use
  Company Number: NL-ABBVIE-5723074

PATIENT
  Sex: Male

DRUGS (8)
  1. CARBIDOPA\LEVODOPA [Suspect]
     Active Substance: CARBIDOPA\LEVODOPA
     Indication: Parkinson^s disease
     Dosage: MD:10.1 ML, CD: 4.6ML/H, ED:2.0ML, REMAINS AT 16 HOUR
     Route: 050
     Dates: start: 20240130, end: 20240311
  2. CARBIDOPA\LEVODOPA [Suspect]
     Active Substance: CARBIDOPA\LEVODOPA
     Dosage: MD:10.1 ML, CD: 4.6ML/H, ED:2.0ML, REMAINS AT 16 HOUR
     Route: 050
     Dates: start: 20231221, end: 20240130
  3. CARBIDOPA\LEVODOPA [Suspect]
     Active Substance: CARBIDOPA\LEVODOPA
     Dosage: MD:10.1 ML, CD: 3.7ML/H, ED:2.0ML, LAST ADMIN DATE 2024, REMAINS AT 16 HOUR
     Route: 050
     Dates: start: 20240328
  4. CARBIDOPA\LEVODOPA [Suspect]
     Active Substance: CARBIDOPA\LEVODOPA
     Dosage: FIRST ADMIN DATE 2024
     Route: 050
  5. CARBIDOPA\LEVODOPA [Suspect]
     Active Substance: CARBIDOPA\LEVODOPA
     Dosage: MD:10.1 ML, CD: 4.0ML/H, ED:2.0ML, REMAINS AT 16 HOUR
     Route: 050
     Dates: start: 20240314, end: 20240328
  6. CARBIDOPA\LEVODOPA [Suspect]
     Active Substance: CARBIDOPA\LEVODOPA
     Dosage: MD:10.1 ML, CD: 4.3ML/H, ED:2.0ML, REMAINS AT 16 HOUR
     Route: 050
     Dates: start: 20240311, end: 20240314
  7. DESMOPRESSIN [Concomitant]
     Active Substance: DESMOPRESSIN
     Indication: Incontinence
  8. BENSERAZIDE HYDROCHLORIDE\LEVODOPA [Concomitant]
     Active Substance: BENSERAZIDE HYDROCHLORIDE\LEVODOPA
     Indication: Product used for unknown indication

REACTIONS (3)
  - Terminal state [Not Recovered/Not Resolved]
  - Device kink [Not Recovered/Not Resolved]
  - Device dislocation [Not Recovered/Not Resolved]
